FAERS Safety Report 4413968-4 (Version None)
Quarter: 2004Q3

REPORT INFORMATION
  Report Type: 
  Country: None (occurrence: None)
  Receive Date: 20040802
  Receipt Date: 20040723
  Transmission Date: 20050211
  Serious: Yes (Other)
  Sender: FDA-Public Use
  Company Number: 04-07-1090

PATIENT
  Age: 63 Year
  Sex: Male

DRUGS (3)
  1. ALBUTEROL [Suspect]
     Indication: ASTHMA
     Dosage: INHALATION
     Route: 055
  2. AMINOPHYLLINE [Suspect]
     Indication: ASTHMA
     Dosage: INTRAVENOUS
     Route: 042
  3. ALBUTEROL SULFATE [Suspect]
     Indication: ASTHMA
     Dosage: 250MCG LOAD INTRAVENOUS
     Route: 042

REACTIONS (5)
  - FATIGUE [None]
  - METABOLIC ACIDOSIS [None]
  - RESPIRATORY ACIDOSIS [None]
  - RESPIRATORY ARREST [None]
  - THERAPY NON-RESPONDER [None]
